FAERS Safety Report 13733571 (Version 1)
Quarter: 2017Q3

REPORT INFORMATION
  Report Type: Spontaneous
  Country: US (occurrence: US)
  Receive Date: 20170707
  Receipt Date: 20170707
  Transmission Date: 20171127
  Serious: Yes (Other)
  Sender: FDA-Public Use
  Company Number: US-ROCHE-1479343

PATIENT
  Age: 51 Year
  Sex: Female
  Weight: 91.71 kg

DRUGS (2)
  1. PERJETA [Suspect]
     Active Substance: PERTUZUMAB
     Dosage: MAINTENANCE DOSE RECEIVED IN THE CLINIC
     Route: 065
     Dates: start: 20141001
  2. PERJETA [Suspect]
     Active Substance: PERTUZUMAB
     Indication: NEOADJUVANT THERAPY
     Dosage: STANDARD LOADING DOSE ON DAY 1 OF CYCLE 1 AS PER PROTOCOL.
     Route: 042
     Dates: start: 20140910, end: 20141022

REACTIONS (1)
  - Hypersensitivity [Recovering/Resolving]

NARRATIVE: CASE EVENT DATE: 20141002
